FAERS Safety Report 10795938 (Version 1)
Quarter: 2015Q1

REPORT INFORMATION
  Report Type: Spontaneous
  Country: US (occurrence: US)
  Receive Date: 20150216
  Receipt Date: 20150216
  Transmission Date: 20150721
  Serious: No
  Sender: FDA-Public Use
  Company Number: US-ASTRAZENECA-2015SE13011

PATIENT
  Age: 16 Year
  Sex: Female
  Weight: 52.2 kg

DRUGS (1)
  1. SEROQUEL XR [Suspect]
     Active Substance: QUETIAPINE FUMARATE
     Indication: BIPOLAR DISORDER
     Route: 048
     Dates: start: 20150108

REACTIONS (4)
  - Low density lipoprotein decreased [Unknown]
  - High density lipoprotein decreased [Unknown]
  - Thyroxine increased [Unknown]
  - Blood triglycerides increased [Unknown]
